FAERS Safety Report 4317357-2 (Version None)
Quarter: 2004Q1

REPORT INFORMATION
  Report Type: 
  Country: None (occurrence: None)
  Receive Date: 20040305
  Receipt Date: 20031112
  Transmission Date: 20041129
  Serious: No
  Sender: FDA-Public Use
  Company Number: US-SHR-03-017332

PATIENT
  Age: 63 Year
  Sex: Female

DRUGS (2)
  1. CAMPATH [Suspect]
     Indication: CHRONIC LYMPHOCYTIC LEUKAEMIA
     Dosage: 3 MG, SUBCUTANEOUS; 30 MG, SUBCUTANEOUS
     Route: 058
     Dates: start: 20031110, end: 20031110
  2. CAMPATH [Suspect]
     Indication: CHRONIC LYMPHOCYTIC LEUKAEMIA
     Dosage: 3 MG, SUBCUTANEOUS; 30 MG, SUBCUTANEOUS
     Route: 058
     Dates: start: 22031101

REACTIONS (2)
  - INJECTION SITE ERYTHEMA [None]
  - INJECTION SITE OEDEMA [None]
